FAERS Safety Report 9885791 (Version 3)
Quarter: 2014Q1

REPORT INFORMATION
  Report Type: Report from Study
  Country: US (occurrence: US)
  Receive Date: 20140210
  Receipt Date: 20140227
  Transmission Date: 20141002
  Serious: Yes (Death, Hospitalization, Other)
  Sender: FDA-Public Use
  Company Number: US-BRISTOL-MYERS SQUIBB COMPANY-17407552

PATIENT
  Age: 54 Year
  Sex: Male

DRUGS (13)
  1. BLINDED: IPILIMUMAB [Suspect]
     Indication: SMALL CELL LUNG CANCER
     Dosage: 16JAN13
     Route: 042
     Dates: start: 20130116, end: 20130208
  2. ETOPOSIDE [Suspect]
     Indication: SMALL CELL LUNG CANCER
     Dosage: 06FEB13 - 08FEB13?NO OF COURSE:02
     Route: 042
     Dates: start: 20130116, end: 20130208
  3. CARBOPLATIN [Suspect]
     Indication: SMALL CELL LUNG CANCER
     Dosage: NO OF COURSE:02
     Route: 042
     Dates: start: 20130116, end: 20130206
  4. BLINDED: PLACEBO [Suspect]
     Indication: SMALL CELL LUNG CANCER
     Route: 042
     Dates: start: 20130116, end: 20130208
  5. ASPIRIN [Concomitant]
     Dates: start: 20130111
  6. HYDROCODONE + ACETAMINOPHEN [Concomitant]
     Dates: start: 20130117
  7. LEUKINE [Concomitant]
     Dates: start: 20130128
  8. OXYCODONE [Concomitant]
     Dosage: 31JAN2013
     Dates: start: 20130111
  9. PLAVIX [Concomitant]
     Dates: start: 20130111
  10. DOCUSATE SODIUM\SENNOSIDES [Concomitant]
     Dates: start: 20130131
  11. SYMBICORT [Concomitant]
     Dates: start: 20130128
  12. TOPROL XL [Concomitant]
     Dates: start: 20130111
  13. PHENERGAN [Concomitant]
     Dates: start: 20130111

REACTIONS (2)
  - Respiratory failure [Fatal]
  - Pleural effusion [Fatal]
